FAERS Safety Report 9060138 (Version 1)
Quarter: 2013Q1

REPORT INFORMATION
  Report Type: Spontaneous
  Country: CA (occurrence: CA)
  Receive Date: 20130212
  Receipt Date: 20130212
  Transmission Date: 20140127
  Serious: Yes (Death)
  Sender: FDA-Public Use
  Company Number: PHHY2013CA012700

PATIENT
  Sex: 0

DRUGS (51)
  1. GLEEVEC [Suspect]
     Dosage: 400 MG, EVERYDAY
     Route: 048
  2. GLEEVEC [Suspect]
     Dosage: 400 MG, EVERYDAY
     Route: 048
  3. GLEEVEC [Suspect]
     Dosage: 400 MG, EVERYDAY
     Route: 048
  4. GLEEVEC [Suspect]
     Dosage: 400 MG, EVERYDAY
     Route: 048
  5. METHOTREXATE [Suspect]
     Dosage: 12 MG/ML
     Route: 037
  6. METHOTREXATE [Suspect]
     Dosage: 12 MG/ML, UNK
     Route: 037
  7. METHOTREXATE [Suspect]
     Dosage: 12 MG/ML, UNK
     Route: 037
  8. METHOTREXATE [Suspect]
     Dosage: 12 MG/ML, UNK
     Route: 037
  9. METHOTREXATE [Suspect]
     Dosage: 30 MG/M2, UNK
     Route: 042
  10. METHOTREXATE [Suspect]
     Dosage: 4000 MG/M2, UNK
     Route: 042
  11. METHOTREXATE [Suspect]
     Dosage: 30 MG/M2, UNK
     Route: 042
  12. METHOTREXATE [Suspect]
     Dosage: 30 MG/M2, UNK
     Route: 030
  13. CYTARABINE [Suspect]
     Dosage: 40 MG, UNK
     Route: 037
  14. CYTARABINE [Suspect]
     Dosage: 40 MG, UNK
     Route: 037
  15. CYTARABINE [Suspect]
     Dosage: 40 MG, UNK
     Route: 037
  16. CYTARABINE [Suspect]
     Dosage: 40 MG, UNK
     Route: 037
  17. DEXAMETHASONE SANDOZ [Suspect]
     Dosage: 9 MG/M2, 2 EVERY DAY
     Route: 048
  18. DEXAMETHASONE SANDOZ [Suspect]
     Dosage: 6 MG/M2, 2 EVERY DAY
     Route: 048
  19. DOXORUBICIN [Suspect]
     Dosage: 30 MG/M2, UNK
     Route: 042
  20. DOXORUBICIN [Suspect]
     Dosage: 30 MG/M2, UNK
     Route: 042
  21. DOXORUBICIN [Suspect]
     Dosage: 30 MG/M2, UNK
     Route: 042
  22. HYDROCORTISONE [Suspect]
     Dosage: 15 MG, UNK
     Route: 037
  23. HYDROCORTISONE [Suspect]
     Dosage: 15 MG, UNK
     Route: 037
  24. HYDROCORTISONE [Suspect]
     Dosage: 15 MG, UNK
     Route: 037
  25. HYDROCORTISONE [Suspect]
     Dosage: 15 MG, UNK
     Route: 037
  26. MERCAPTOPURINE [Suspect]
     Dosage: 50 MG/M2, UNK
     Route: 048
  27. MERCAPTOPURINE [Suspect]
     Dosage: 50 MG/M2, UNK
     Route: 048
  28. MERCAPTOPURINE [Suspect]
     Dosage: 50 MG/M2, UNK
     Route: 048
  29. ERWINIA [Suspect]
     Dosage: UNK UKN, UNK
     Route: 030
  30. ERWINIA [Suspect]
     Dosage: UNK UKN, UNK
     Route: 030
  31. BUSULFAN [Suspect]
     Dosage: 3.2 MG/KG, ONE EVERYDAY
  32. BUSULFAN [Suspect]
     Dosage: 3.2 MG/KG, ONE EVERYDAY
  33. CYCLOPHOSPHAMIDE [Suspect]
     Dosage: 60 MG/KG, UNK
  34. FLUDARABINE [Suspect]
     Dosage: 30 MG/M2, UNK
  35. FLUDARABINE [Suspect]
     Dosage: 50 MG/M2, UNK
  36. PREDNISONE [Suspect]
     Dosage: 10 MG, FOUR TIMES EVERY DAY
     Route: 048
  37. LEUCOVORIN [Suspect]
     Dosage: UNK UKN, UNK
  38. RADIATION THERAPY [Suspect]
     Dosage: UNK UKN, UNK
  39. VINCRISTINE SULPHATE [Suspect]
     Dosage: 2 MG, UNK
     Route: 042
  40. VINCRISTINE SULPHATE [Suspect]
     Dosage: 2 MG, UNK
     Route: 042
  41. VINCRISTINE SULPHATE [Suspect]
     Dosage: 2 MG, UNK
     Route: 042
  42. VINCRISTINE SULPHATE [Suspect]
     Dosage: 2 MG, UNK
     Route: 042
  43. ALENDRONATE [Concomitant]
     Dosage: UNK UKN, UNK
  44. BACTRIM [Concomitant]
     Dosage: UNK UKN, UNK
  45. CALCIUM [Concomitant]
     Dosage: UNK UKN, UNK
  46. VITAMIN D [Concomitant]
     Dosage: UNK UKN, UNK
  47. CYCLOSPORINE [Concomitant]
     Dosage: UNK UKN, UNK
  48. FLUCONAZOLE [Concomitant]
     Dosage: UNK UKN, UNK
  49. RISEDRONATE SODIUM [Concomitant]
     Dosage: UNK UKN, UNK
  50. PENTAMIDINE [Concomitant]
     Dosage: 10 MG, 4 EVERY DAY
     Route: 048
  51. MABCAMPATH [Concomitant]
     Dosage: UNK UKN, UNK

REACTIONS (1)
  - Influenza [Fatal]
